FAERS Safety Report 6982876-7 (Version None)
Quarter: 2010Q3

REPORT INFORMATION
  Report Type: 
  Country: None (occurrence: None)
  Receive Date: 20100914
  Receipt Date: 20100518
  Transmission Date: 20110219
  Serious: Yes (Other)
  Sender: FDA-Public Use
  Company Number: US-PFIZER INC-2010034523

PATIENT
  Sex: Female
  Weight: 86.182 kg

DRUGS (3)
  1. LYRICA [Suspect]
     Indication: FIBROMYALGIA
     Dosage: 25 MG, 2X/DAY
  2. LYRICA [Suspect]
     Dosage: 150 MG, AT BEDTIME
     Dates: start: 20091215, end: 20100101
  3. PROZAC [Concomitant]
     Dosage: UNK

REACTIONS (2)
  - DEPRESSION [None]
  - SUICIDAL IDEATION [None]
